FAERS Safety Report 17745376 (Version 2)
Quarter: 2020Q3

REPORT INFORMATION
  Report Type: Report from Study
  Country: US (occurrence: US)
  Receive Date: 20200505
  Receipt Date: 20200717
  Transmission Date: 20201102
  Serious: Yes (Death, Hospitalization)
  Sender: FDA-Public Use
  Company Number: US-EISAI MEDICAL RESEARCH-EC-2020-073216

PATIENT
  Age: 50 Year
  Sex: Female
  Weight: 85 kg

DRUGS (20)
  1. SENNOSIDES. [Concomitant]
     Active Substance: SENNOSIDES
     Dosage: 1?2 TABLETS EVERY NIGHT AT BEDTIME
     Route: 048
  2. KEYTRUDA [Suspect]
     Active Substance: PEMBROLIZUMAB
     Indication: ENDOMETRIAL CANCER
     Route: 041
     Dates: start: 20200306, end: 20200518
  3. ELIQUIS [Concomitant]
     Active Substance: APIXABAN
  4. COMPAZINE [Concomitant]
     Active Substance: PROCHLORPERAZINE MALEATE
  5. CLONAZEPAM. [Concomitant]
     Active Substance: CLONAZEPAM
  6. LEVOTHYROXINE. [Concomitant]
     Active Substance: LEVOTHYROXINE
  7. PROPANOL [Concomitant]
     Active Substance: PROPRANOLOL HYDROCHLORIDE
  8. AMLODIPINE [Concomitant]
     Active Substance: AMLODIPINE BESYLATE
  9. ZOFRAN [Concomitant]
     Active Substance: ONDANSETRON HYDROCHLORIDE
  10. FERROUS SULFATE. [Concomitant]
     Active Substance: FERROUS SULFATE
  11. POLYETHYLENE GLYCOL 3350. [Concomitant]
     Active Substance: POLYETHYLENE GLYCOL 3350
     Dosage: 236?22 74?6.74 ? 5.86 GRAM
  12. TYLENOL [Concomitant]
     Active Substance: ACETAMINOPHEN
     Route: 048
  13. LENVIMA [Suspect]
     Active Substance: LENVATINIB
     Indication: ENDOMETRIAL CANCER
     Route: 048
     Dates: start: 20200330, end: 20200505
  14. CLOZAPINE. [Concomitant]
     Active Substance: CLOZAPINE
  15. GEMZAR IV [Concomitant]
  16. CISPLATIN. [Concomitant]
     Active Substance: CISPLATIN
  17. LORATADINE. [Concomitant]
     Active Substance: LORATADINE
  18. ERGOCALCIFEROL. [Concomitant]
     Active Substance: ERGOCALCIFEROL
  19. FLUVOXAMINE [Concomitant]
     Active Substance: FLUVOXAMINE
  20. PERPHENAZINE. [Concomitant]
     Active Substance: PERPHENAZINE

REACTIONS (12)
  - Hypertension [Unknown]
  - Death [Fatal]
  - Dyspnoea exertional [Unknown]
  - Blood creatinine increased [Recovering/Resolving]
  - Hyperkalaemia [Fatal]
  - Hyponatraemia [Recovering/Resolving]
  - Generalised oedema [Fatal]
  - Fatigue [Unknown]
  - Nausea [Unknown]
  - Acute kidney injury [Fatal]
  - Renal impairment [Unknown]
  - Fall [Fatal]

NARRATIVE: CASE EVENT DATE: 2020
